FAERS Safety Report 15374877 (Version 1)
Quarter: 2018Q3

REPORT INFORMATION
  Report Type: Spontaneous
  Country: JP (occurrence: JP)
  Receive Date: 20180912
  Receipt Date: 20180912
  Transmission Date: 20181010
  Serious: Yes (Hospitalization)
  Sender: FDA-Public Use
  Company Number: JP-EISAI MEDICAL RESEARCH-EC-2018-044898

PATIENT
  Age: 84 Year
  Sex: Female

DRUGS (1)
  1. LENVIMA [Suspect]
     Active Substance: LENVATINIB
     Indication: HEPATOCELLULAR CARCINOMA
     Route: 048
     Dates: start: 20180711, end: 20180822

REACTIONS (2)
  - Haematemesis [Recovering/Resolving]
  - Ammonia increased [Recovered/Resolved]

NARRATIVE: CASE EVENT DATE: 20180822
